FAERS Safety Report 7764746-X (Version None)
Quarter: 2011Q3

REPORT INFORMATION
  Report Type: 
  Country: None (occurrence: None)
  Receive Date: 20110921
  Receipt Date: 20110921
  Transmission Date: 20111222
  Serious: Yes (Congenital Anomaly)
  Sender: FDA-Public Use
  Company Number: None

PATIENT
  Sex: Female
  Weight: 38.555 kg

DRUGS (1)
  1. ZOLOFT [Suspect]
     Indication: DEPRESSION
     Dosage: 100MG
     Route: 048
     Dates: start: 19990101, end: 20030501

REACTIONS (3)
  - MATERNAL DRUGS AFFECTING FOETUS [None]
  - SYNDACTYLY [None]
  - EMOTIONAL DISORDER [None]
